FAERS Safety Report 8084080-0 (Version None)
Quarter: 2012Q1

REPORT INFORMATION
  Report Type: 
  Country: None (occurrence: None)
  Receive Date: 20120128
  Receipt Date: 20110208
  Transmission Date: 20120608
  Serious: No
  Sender: FDA-Public Use
  Company Number: US-ABBOTT-11P-163-0703375-00

PATIENT
  Age: 48 Year
  Sex: Female

DRUGS (4)
  1. HUMIRA [Suspect]
     Indication: PSORIASIS
     Dates: start: 20100101
  2. SERTRALINE HYDROCHLORIDE [Concomitant]
     Indication: PRODUCT USED FOR UNKNOWN INDICATION
  3. ESTROBLEND [Concomitant]
     Indication: MENOPAUSE
  4. NEW THYROID MEDICAITON [Concomitant]
     Indication: PRODUCT USED FOR UNKNOWN INDICATION

REACTIONS (7)
  - INJECTION SITE HAEMATOMA [None]
  - INJECTION SITE PAIN [None]
  - FATIGUE [None]
  - SLUGGISHNESS [None]
  - HYPERTHYROIDISM [None]
  - INJECTION SITE ERYTHEMA [None]
  - INJECTION SITE SWELLING [None]
